FAERS Safety Report 14847265 (Version 1)
Quarter: 2018Q2

REPORT INFORMATION
  Report Type: Spontaneous
  Country: US (occurrence: US)
  Receive Date: 20180504
  Receipt Date: 20180504
  Transmission Date: 20180711
  Serious: Yes (Hospitalization, Other)
  Sender: FDA-Public Use
  Company Number: US-IMPAX LABORATORIES, INC-2018-IPXL-01442

PATIENT
  Age: 62 Year
  Sex: Male

DRUGS (1)
  1. PROPRANOLOL HYDROCHLORIDE IR [Suspect]
     Active Substance: PROPRANOLOL HYDROCHLORIDE
     Indication: HYPERTENSION
     Dosage: 40 MG, BID
     Route: 065

REACTIONS (7)
  - Hyperkalaemia [Recovered/Resolved]
  - Bradycardia [Recovered/Resolved]
  - Toxicity to various agents [Recovered/Resolved]
  - Cardiac arrest [Recovered/Resolved]
  - Shock [Recovered/Resolved]
  - Syncope [Recovered/Resolved]
  - Acute kidney injury [Recovered/Resolved]
